FAERS Safety Report 20210485 (Version 2)
Quarter: 2022Q1

REPORT INFORMATION
  Report Type: Report from Study
  Country: US (occurrence: US)
  Receive Date: 20211221
  Receipt Date: 20220328
  Transmission Date: 20220423
  Serious: No
  Sender: FDA-Public Use
  Company Number: US-Ipsen Biopharmaceuticals, Inc.-2021-32229

PATIENT
  Age: 33 Year
  Sex: Male

DRUGS (1)
  1. SOMATULINE DEPOT [Suspect]
     Active Substance: LANREOTIDE ACETATE
     Indication: Acromegaly
     Dosage: 90 MG EVERY 4 WEEKS/28 DAYS
     Route: 058
     Dates: start: 2015

REACTIONS (11)
  - Injection site pruritus [Unknown]
  - Injection site mass [Unknown]
  - Diarrhoea [Recovering/Resolving]
  - Constipation [Recovering/Resolving]
  - Muscle spasms [Recovering/Resolving]
  - Pain [Unknown]
  - Disturbance in attention [Recovering/Resolving]
  - Irritability [Unknown]
  - Heart rate decreased [Recovering/Resolving]
  - Anxiety [Recovering/Resolving]
  - Mental impairment [Recovering/Resolving]
